FAERS Safety Report 8398458-9 (Version None)
Quarter: 2012Q2

REPORT INFORMATION
  Report Type: 
  Country: None (occurrence: None)
  Receive Date: 20120531
  Receipt Date: 20120522
  Transmission Date: 20120825
  Serious: Yes (Other)
  Sender: FDA-Public Use
  Company Number: US-ASTRAZENECA-2012SE26453

PATIENT
  Age: 52 Year
  Sex: Male

DRUGS (2)
  1. NEXIUM [Suspect]
     Route: 048
  2. PRILOSEC OTC [Suspect]
     Route: 048

REACTIONS (8)
  - DRUG INEFFECTIVE [None]
  - GASTRIC ULCER [None]
  - MALAISE [None]
  - ULCER [None]
  - DUODENAL ULCER [None]
  - VOMITING [None]
  - WEIGHT DECREASED [None]
  - INTENTIONAL DRUG MISUSE [None]
